FAERS Safety Report 8082502-2 (Version None)
Quarter: 2012Q1

REPORT INFORMATION
  Report Type: 
  Country: None (occurrence: None)
  Receive Date: 20120127
  Receipt Date: 20110221
  Transmission Date: 20120608
  Serious: No
  Sender: FDA-Public Use
  Company Number: US-ABBOTT-11P-163-0706503-00

PATIENT
  Sex: Female
  Weight: 61.29 kg

DRUGS (5)
  1. VICODIN [Concomitant]
     Indication: ARTHRALGIA
     Dosage: AS NEEDED
     Route: 048
  2. HUMIRA [Suspect]
     Route: 058
     Dates: start: 20110101
  3. PREDNISONE TAB [Concomitant]
     Indication: RHEUMATOID ARTHRITIS
     Dosage: AS NEEDED
  4. HUMIRA [Suspect]
     Indication: RHEUMATOID ARTHRITIS
     Route: 058
     Dates: start: 20071201
  5. METHOTREXATE [Concomitant]
     Indication: RHEUMATOID ARTHRITIS
     Dosage: 2.5 MG - 6 TIMES A WEEK
     Route: 048

REACTIONS (1)
  - INAPPROPRIATE SCHEDULE OF DRUG ADMINISTRATION [None]
